FAERS Safety Report 21758727 (Version 1)
Quarter: 2022Q4

REPORT INFORMATION
  Report Type: Report from Study
  Country: US (occurrence: US)
  Receive Date: 20221221
  Receipt Date: 20221221
  Transmission Date: 20230113
  Serious: Yes (Other)
  Sender: FDA-Public Use
  Company Number: US-ABBVIE-4242773

PATIENT
  Sex: Female

DRUGS (1)
  1. HUMIRA [Suspect]
     Active Substance: ADALIMUMAB
     Indication: Rheumatoid arthritis
     Route: 058

REACTIONS (6)
  - Deafness unilateral [Unknown]
  - Herpes zoster [Unknown]
  - Weight decreased [Unknown]
  - Bell^s palsy [Unknown]
  - Sinusitis [Unknown]
  - Vertigo [Unknown]
